FAERS Safety Report 7788334-4 (Version None)
Quarter: 2011Q3

REPORT INFORMATION
  Report Type: 
  Country: None (occurrence: None)
  Receive Date: 20110929
  Receipt Date: 20110929
  Transmission Date: 20111222
  Serious: Yes (Other)
  Sender: FDA-Public Use
  Company Number: None

PATIENT
  Sex: Male
  Weight: 97.5234 kg

DRUGS (1)
  1. INVEGA [Suspect]

REACTIONS (5)
  - HEADACHE [None]
  - HEART RATE IRREGULAR [None]
  - DISTURBANCE IN ATTENTION [None]
  - AMNESIA [None]
  - ABDOMINAL PAIN UPPER [None]
